FAERS Safety Report 17825050 (Version 6)
Quarter: 2020Q3

REPORT INFORMATION
  Report Type: Spontaneous
  Country: US (occurrence: US)
  Receive Date: 20200526
  Receipt Date: 20200812
  Transmission Date: 20201102
  Serious: Yes (Other)
  Sender: FDA-Public Use
  Company Number: US-SA-2020SA132715

PATIENT

DRUGS (3)
  1. LANTUS [Suspect]
     Active Substance: INSULIN GLARGINE
     Indication: TYPE 2 DIABETES MELLITUS
     Dosage: 10 IU, BID
     Route: 065
  2. LANTUS [Suspect]
     Active Substance: INSULIN GLARGINE
     Dosage: SOMETIMES ONLY GETS 6 TO 8 UNITS
     Route: 065
  3. LANTUS [Suspect]
     Active Substance: INSULIN GLARGINE
     Dosage: 8 IU, BID
     Route: 065

REACTIONS (7)
  - Diabetes mellitus inadequate control [Unknown]
  - Device operational issue [Unknown]
  - Incorrect dose administered by device [Unknown]
  - Blood glucose increased [Unknown]
  - Visual impairment [Unknown]
  - Wrong technique in device usage process [Unknown]
  - Off label use [Unknown]
